FAERS Safety Report 6317389-9 (Version None)
Quarter: 2009Q3

REPORT INFORMATION
  Report Type: 
  Country: None (occurrence: None)
  Receive Date: 20090820
  Receipt Date: 20090820
  Transmission Date: 20100115
  Serious: Yes (Other)
  Sender: FDA-Public Use
  Company Number: None

PATIENT
  Sex: Female
  Weight: 83.0083 kg

DRUGS (1)
  1. METFORMIN HCL [Suspect]
     Indication: DIABETES MELLITUS
     Dosage: 1 TABLET 3 TIMES/DAY ORAL
     Route: 048
     Dates: start: 20090707, end: 20090731

REACTIONS (20)
  - ARTHRALGIA [None]
  - ASTHENIA [None]
  - BLOOD GLUCOSE INCREASED [None]
  - CHILLS [None]
  - CONSTIPATION [None]
  - DECREASED APPETITE [None]
  - DRUG TOXICITY [None]
  - FATIGUE [None]
  - FEELING ABNORMAL [None]
  - GASTRIC DISORDER [None]
  - HAIR TEXTURE ABNORMAL [None]
  - HOT FLUSH [None]
  - HYPERHIDROSIS [None]
  - MUSCULAR WEAKNESS [None]
  - OROPHARYNGEAL PAIN [None]
  - PRODUCT ODOUR ABNORMAL [None]
  - SKIN DISORDER [None]
  - SWELLING [None]
  - THROAT TIGHTNESS [None]
  - WEIGHT INCREASED [None]
